FAERS Safety Report 5368049-2 (Version None)
Quarter: 2007Q2

REPORT INFORMATION
  Report Type: 
  Country: None (occurrence: None)
  Receive Date: 20070622
  Receipt Date: 20070612
  Transmission Date: 20071010
  Serious: Yes (Other)
  Sender: FDA-Public Use
  Company Number: US-PFIZER INC-2007049014

PATIENT
  Age: 58 Year
  Sex: Female
  Weight: 91.6 kg

DRUGS (3)
  1. CHANTIX [Suspect]
     Indication: SMOKING CESSATION THERAPY
     Route: 048
     Dates: start: 20070501, end: 20070101
  2. ALL OTHER THERAPEUTIC PRODUCTS [Concomitant]
     Indication: BLOOD PRESSURE
     Route: 048
  3. THYROID TAB [Concomitant]
     Route: 048

REACTIONS (2)
  - NAUSEA [None]
  - SHOULDER OPERATION [None]
